FAERS Safety Report 9080695 (Version 1)
Quarter: 2013Q1

REPORT INFORMATION
  Report Type: Report from Study
  Country: FR (occurrence: FR)
  Receive Date: 20130218
  Receipt Date: 20130218
  Transmission Date: 20140127
  Serious: Yes (Other)
  Sender: FDA-Public Use
  Company Number: FR-BRISTOL-MYERS SQUIBB COMPANY-17384264

PATIENT
  Age: 66 Year
  Sex: Male

DRUGS (1)
  1. CETUXIMAB [Suspect]
     Indication: HEAD AND NECK CANCER
     Dates: start: 20120309

REACTIONS (5)
  - Pyrexia [Recovered/Resolved with Sequelae]
  - Radiation skin injury [Recovered/Resolved with Sequelae]
  - Radiation mucositis [Recovered/Resolved with Sequelae]
  - Odynophagia [Recovered/Resolved with Sequelae]
  - Dysphagia [Recovered/Resolved with Sequelae]
